FAERS Safety Report 23009195 (Version 2)
Quarter: 2024Q2

REPORT INFORMATION
  Report Type: Spontaneous
  Country: US (occurrence: US)
  Receive Date: 20230929
  Receipt Date: 20240620
  Transmission Date: 20240716
  Serious: Yes (Hospitalization, Other)
  Sender: FDA-Public Use
  Company Number: US-APOTEX-2023AP014148

PATIENT
  Age: 67 Year
  Sex: Male

DRUGS (13)
  1. ACETAMINOPHEN [Suspect]
     Active Substance: ACETAMINOPHEN
     Indication: Product used for unknown indication
     Dosage: 24.5 GRAM
     Route: 048
  2. LEVETIRACETAM [Suspect]
     Active Substance: LEVETIRACETAM
     Indication: Seizure
     Dosage: 3500 MILLIGRAM
     Route: 065
  3. AMIFAMPRIDINE [Suspect]
     Active Substance: AMIFAMPRIDINE
     Indication: Myasthenic syndrome
     Dosage: 100 MILLIGRAM
     Route: 048
  4. MIDAZOLAM [Suspect]
     Active Substance: MIDAZOLAM
     Indication: Seizure
     Dosage: 53 MILLIGRAM
     Route: 040
  5. MIDAZOLAM [Suspect]
     Active Substance: MIDAZOLAM
     Dosage: 73 MG/ HOUR
     Route: 040
  6. DIAZEPAM [Suspect]
     Active Substance: DIAZEPAM
     Indication: Seizure
     Dosage: 20 MILLIGRAM
     Route: 065
  7. LORAZEPAM [Suspect]
     Active Substance: LORAZEPAM
     Indication: Seizure
     Dosage: 4 MILLIGRAM
     Route: 065
  8. KETAMINE [Suspect]
     Active Substance: KETAMINE
     Indication: Seizure
     Dosage: 306.6 MILLIGRAM
     Route: 040
  9. KETAMINE [Suspect]
     Active Substance: KETAMINE
     Dosage: 146 MG/H
     Route: 040
  10. PREDNISONE [Concomitant]
     Active Substance: PREDNISONE
     Indication: Product used for unknown indication
     Dosage: UNK
     Route: 065
  11. PYRIDOSTIGMINE [Concomitant]
     Active Substance: PYRIDOSTIGMINE
     Indication: Product used for unknown indication
     Dosage: UNK
     Route: 065
  12. SERTRALINE [Concomitant]
     Active Substance: SERTRALINE HYDROCHLORIDE
     Indication: Product used for unknown indication
     Dosage: UNK
     Route: 065
  13. TRAZODONE [Concomitant]
     Active Substance: TRAZODONE HYDROCHLORIDE
     Indication: Product used for unknown indication
     Dosage: UNK
     Route: 065

REACTIONS (13)
  - Toxicity to various agents [Recovered/Resolved]
  - Pulseless electrical activity [Recovered/Resolved]
  - Status epilepticus [Recovered/Resolved]
  - Intentional overdose [Recovered/Resolved]
  - Hypertension [Recovered/Resolved]
  - Tachypnoea [Recovered/Resolved]
  - Hyperhidrosis [Recovered/Resolved]
  - Tremor [Recovered/Resolved]
  - Tachycardia [Recovered/Resolved]
  - Feeling jittery [Recovered/Resolved]
  - Seizure [Recovered/Resolved]
  - Suicide attempt [Unknown]
  - Drug ineffective [Unknown]
